FAERS Safety Report 5202733-6 (Version None)
Quarter: 2006Q4

REPORT INFORMATION
  Report Type: 
  Country: None (occurrence: None)
  Receive Date: 20061018
  Receipt Date: 20051003
  Transmission Date: 20070319
  Serious: Yes (Death, Hospitalization, Other)
  Sender: FDA-Public Use
  Company Number: PHEH2005US06617

PATIENT
  Age: 83 Year
  Sex: Female

DRUGS (12)
  1. ZOMETA [Suspect]
     Indication: METASTASES TO BONE
     Dosage: 4 MG MONTHLY, INFUSION
     Dates: start: 20040501, end: 20050301
  2. ALIMTA [Concomitant]
  3. VITAMIN B12 [Concomitant]
  4. FOLIC ACID [Concomitant]
  5. DECADRON [Concomitant]
  6. TESSALON [Concomitant]
  7. COMPAZINE [Concomitant]
  8. GLYBURIDE [Concomitant]
  9. LOTREL [Concomitant]
  10. TAXOTERE [Concomitant]
  11. GEMZAR [Concomitant]
  12. IRESSA [Concomitant]

REACTIONS (6)
  - BLOOD CREATININE INCREASED [None]
  - HYPOCALCAEMIA [None]
  - HYPOMAGNESAEMIA [None]
  - MALAISE [None]
  - MALIGNANT NEOPLASM PROGRESSION [None]
  - RENAL CYST [None]
